FAERS Safety Report 14340017 (Version 4)
Quarter: 2018Q1

REPORT INFORMATION
  Report Type: Spontaneous
  Country: ES (occurrence: ES)
  Receive Date: 20171231
  Receipt Date: 20180302
  Transmission Date: 20180509
  Serious: Yes (Other)
  Sender: FDA-Public Use
  Company Number: ES-TEVA-2017-ES-832259

PATIENT
  Sex: Female

DRUGS (21)
  1. TRAMADOL W/PARACETAMOL [Suspect]
     Active Substance: ACETAMINOPHEN\TRAMADOL
     Indication: PRODUCT USED FOR UNKNOWN INDICATION
     Dosage: 3 DOSAGE FORMS DAILY; 1 DF = 37.5/325 MG
     Route: 065
     Dates: start: 20161118
  2. TOPIRAMATE. [Suspect]
     Active Substance: TOPIRAMATE
     Dosage: .5 DOSAGE FORMS DAILY;
     Dates: start: 20170203, end: 20170420
  3. ESCITALOPRAM [Suspect]
     Active Substance: ESCITALOPRAM OXALATE
     Indication: PRODUCT USED FOR UNKNOWN INDICATION
     Dosage: 1 DOSAGE FORMS DAILY; 10 MG
     Route: 065
     Dates: start: 20160901
  4. DIAZEPAM, SULPIRIDE [Suspect]
     Active Substance: DIAZEPAM\SULPIRIDE
     Route: 065
     Dates: start: 20160901
  5. ENALAPRIL/HYDROCHLOROTHIAZIDE [Suspect]
     Active Substance: ENALAPRIL MALEATE\HYDROCHLOROTHIAZIDE
     Indication: PRODUCT USED FOR UNKNOWN INDICATION
     Dosage: 1 DOSAGE FORMS DAILY; 1 DF = 20/12.5 MG
     Route: 065
     Dates: start: 20160901
  6. SIMVASTATIN. [Suspect]
     Active Substance: SIMVASTATIN
     Dosage: 20 MG
     Route: 065
     Dates: start: 20170420
  7. LORMETAZEPAM [Suspect]
     Active Substance: LORMETAZEPAM
     Indication: PRODUCT USED FOR UNKNOWN INDICATION
     Dosage: 1 DOSAGE FORMS DAILY; 1 MG
     Route: 065
     Dates: start: 20160901, end: 20160930
  8. AMLODIPINE [Suspect]
     Active Substance: AMLODIPINE BESYLATE
     Indication: PRODUCT USED FOR UNKNOWN INDICATION
     Dosage: 1 DOSAGE FORMS DAILY; 5 MG
     Route: 065
     Dates: start: 20160901
  9. OMEPRAZOLE. [Suspect]
     Active Substance: OMEPRAZOLE
     Indication: PRODUCT USED FOR UNKNOWN INDICATION
     Dosage: 1 DOSAGE FORMS DAILY; 20 MG
     Route: 065
     Dates: start: 20160901, end: 20161125
  10. TEPAZEPAM [Suspect]
     Active Substance: DIAZEPAM\SULPIRIDE
     Indication: PRODUCT USED FOR UNKNOWN INDICATION
     Dosage: QD
     Route: 065
     Dates: start: 20160901
  11. PARACETAMOL [Suspect]
     Active Substance: ACETAMINOPHEN
     Indication: PRODUCT USED FOR UNKNOWN INDICATION
     Dosage: 3 DOSAGE FORMS DAILY; 1 G
     Route: 065
     Dates: start: 20160901, end: 20161118
  12. SIMVASTATIN. [Suspect]
     Active Substance: SIMVASTATIN
     Indication: PRODUCT USED FOR UNKNOWN INDICATION
     Dosage: 1 DOSAGE FORMS DAILY; 40 MG
     Dates: start: 20160901, end: 20170420
  13. TOPIRAMATE. [Suspect]
     Active Substance: TOPIRAMATE
     Indication: PRODUCT USED FOR UNKNOWN INDICATION
     Dosage: 1 DOSAGE FORMS DAILY; 50 MG
     Route: 065
     Dates: start: 20170420, end: 20170509
  14. AMITRIPTYLINE HYDROCHLORIDE. [Suspect]
     Active Substance: AMITRIPTYLINE HYDROCHLORIDE
     Route: 065
     Dates: start: 20170516
  15. METOCLOPRAMIDE. [Concomitant]
     Active Substance: METOCLOPRAMIDE
     Indication: PRODUCT USED FOR UNKNOWN INDICATION
     Dosage: 1 WEEK TREATMENT
     Route: 065
     Dates: start: 20161125
  16. GLIBENCLAMIDA [Suspect]
     Active Substance: GLYBURIDE
     Indication: PRODUCT USED FOR UNKNOWN INDICATION
     Dosage: 2 DOSAGE FORMS DAILY;
     Route: 065
     Dates: start: 20160901
  17. DIAZEPAM. [Suspect]
     Active Substance: DIAZEPAM
     Indication: PRODUCT USED FOR UNKNOWN INDICATION
     Dosage: .5 DOSAGE FORMS DAILY; 5 MG
     Route: 011
     Dates: start: 20160930, end: 20161021
  18. AMITRIPTYLINE 25 MG [Suspect]
     Active Substance: AMITRIPTYLINE
     Indication: HEADACHE
     Dosage: 12.5 MILLIGRAM DAILY;
     Route: 065
     Dates: start: 20170509, end: 20170516
  19. NAPROXEN. [Suspect]
     Active Substance: NAPROXEN
     Indication: PRODUCT USED FOR UNKNOWN INDICATION
     Dosage: 2 DOSAGE FORMS DAILY;
     Route: 065
     Dates: start: 20160901, end: 20161118
  20. AMITRIPTYLINE 10 MG [Suspect]
     Active Substance: AMITRIPTYLINE
     Indication: HEADACHE
     Dosage: QD
     Route: 065
     Dates: start: 20161118
  21. AMITRIPTYLINE 25 MG [Suspect]
     Active Substance: AMITRIPTYLINE
     Dosage: 25 MILLIGRAM DAILY;
     Dates: start: 20170516

REACTIONS (9)
  - Insomnia [Recovering/Resolving]
  - Depression [Recovering/Resolving]
  - Drug ineffective [Unknown]
  - Pain in extremity [Recovered/Resolved]
  - Headache [Not Recovered/Not Resolved]
  - Dizziness [Recovering/Resolving]
  - Treatment noncompliance [Unknown]
  - Somnolence [Recovering/Resolving]
  - Fall [Unknown]

NARRATIVE: CASE EVENT DATE: 201610
